FAERS Safety Report 12070707 (Version 1)
Quarter: 2016Q1

REPORT INFORMATION
  Report Type: Spontaneous
  Country: US (occurrence: US)
  Receive Date: 20160211
  Receipt Date: 20160211
  Transmission Date: 20160526
  Serious: No
  Sender: FDA-Public Use
  Company Number: US-BIOGEN-2016BI00185084

PATIENT
  Sex: Female

DRUGS (1)
  1. TYSABRI [Suspect]
     Active Substance: NATALIZUMAB
     Indication: MULTIPLE SCLEROSIS
     Route: 065
     Dates: start: 20130205

REACTIONS (6)
  - Rhinorrhoea [Unknown]
  - Cough [Unknown]
  - Bronchitis [Unknown]
  - Sneezing [Unknown]
  - Sinusitis [Unknown]
  - Ear infection [Unknown]
